FAERS Safety Report 5523028-7 (Version None)
Quarter: 2007Q4

REPORT INFORMATION
  Report Type: 
  Country: None (occurrence: None)
  Receive Date: 20071116
  Receipt Date: 20071116
  Transmission Date: 20080405
  Serious: Yes (Life-Threatening, Hospitalization)
  Sender: FDA-Public Use
  Company Number: None

PATIENT
  Age: 67 Year
  Sex: Female
  Weight: 59.8748 kg

DRUGS (1)
  1. PHENAZOPYRIDINE HCL TAB [Suspect]
     Indication: DYSURIA
     Dosage: ONE DAILY PO
     Route: 048
     Dates: start: 20070801, end: 20070807

REACTIONS (5)
  - ASTHENIA [None]
  - HAEMOLYTIC ANAEMIA [None]
  - HYPOTENSION [None]
  - LETHARGY [None]
  - OXYGEN SATURATION DECREASED [None]
